FAERS Safety Report 5719840-1 (Version None)
Quarter: 2008Q2

REPORT INFORMATION
  Report Type: 
  Country: None (occurrence: None)
  Receive Date: 20080428
  Receipt Date: 20080415
  Transmission Date: 20081010
  Serious: Yes (Hospitalization, Other)
  Sender: FDA-Public Use
  Company Number: US-MERCK-0705USA02858

PATIENT
  Age: 44 Year
  Sex: Female

DRUGS (1)
  1. FOSAMAX [Suspect]
     Route: 048
     Dates: start: 19990601, end: 20020601

REACTIONS (9)
  - ANGINA UNSTABLE [None]
  - ARTHRALGIA [None]
  - CHEST PAIN [None]
  - CORONARY ARTERY DISEASE [None]
  - MYOCARDIAL INFARCTION [None]
  - OROPHARYNGEAL BLISTERING [None]
  - OSTEOMYELITIS [None]
  - OSTEONECROSIS [None]
  - TOOTH LOSS [None]
